FAERS Safety Report 4793863-1 (Version None)
Quarter: 2005Q4

REPORT INFORMATION
  Report Type: 
  Country: None (occurrence: None)
  Receive Date: 20051006
  Receipt Date: 20050928
  Transmission Date: 20060501
  Serious: Yes (Death, Hospitalization)
  Sender: FDA-Public Use
  Company Number: US-2005-18493

PATIENT
  Age: 59 Year
  Sex: Male

DRUGS (4)
  1. BETASERON [Suspect]
     Indication: MULTIPLE SCLEROSIS
     Dosage: SUBCUTANEOUS
     Route: 058
     Dates: start: 19970728, end: 20050901
  2. LORAZEPAM [Concomitant]
  3. ASPIRIN [Concomitant]
  4. MEGACE [Concomitant]

REACTIONS (1)
  - ASPIRATION [None]
